FAERS Safety Report 7276224-5 (Version None)
Quarter: 2011Q1

REPORT INFORMATION
  Report Type: 
  Country: None (occurrence: None)
  Receive Date: 20110204
  Receipt Date: 20110203
  Transmission Date: 20110831
  Serious: Yes (Death)
  Sender: FDA-Public Use
  Company Number: PHHO2010DE15654

PATIENT
  Sex: Female

DRUGS (1)
  1. ALISKIREN [Suspect]
     Indication: CARDIAC FAILURE ACUTE
     Dosage: 150 MG,
     Route: 048
     Dates: start: 20100813, end: 20100929

REACTIONS (8)
  - EPILEPSY [None]
  - CONVULSION [None]
  - ASPHYXIA [None]
  - VOMITING [None]
  - CHRONIC OBSTRUCTIVE PULMONARY DISEASE [None]
  - HYPOTENSION [None]
  - ASPIRATION [None]
  - CIRCULATORY COLLAPSE [None]
